FAERS Safety Report 6723629-4 (Version None)
Quarter: 2010Q2

REPORT INFORMATION
  Report Type: 
  Country: None (occurrence: None)
  Receive Date: 20100513
  Receipt Date: 20100430
  Transmission Date: 20101027
  Serious: Yes (Hospitalization, Other)
  Sender: FDA-Public Use
  Company Number: PHHY2010BE23475

PATIENT
  Sex: Female

DRUGS (9)
  1. RASILEZ [Suspect]
     Indication: HYPERTENSION
     Dosage: 150 MG, UNK
     Route: 048
     Dates: start: 20100201, end: 20100401
  2. ACE INHIBITOR NOS [Concomitant]
  3. COZAAR [Concomitant]
  4. MOXONIDINE [Concomitant]
  5. NOBITEN [Concomitant]
  6. AMLOR [Concomitant]
  7. RIVABERINE [Concomitant]
  8. ZANIDIP [Concomitant]
  9. GLUCOPHAGE [Concomitant]

REACTIONS (3)
  - ANAEMIA [None]
  - FATIGUE [None]
  - RENAL FAILURE [None]
